FAERS Safety Report 5775162-4 (Version None)
Quarter: 2008Q2

REPORT INFORMATION
  Report Type: 
  Country: None (occurrence: None)
  Receive Date: 20080616
  Receipt Date: 20080616
  Transmission Date: 20081010
  Serious: Yes (Other)
  Sender: FDA-Public Use
  Company Number: None

PATIENT
  Age: 44 Year
  Sex: Female
  Weight: 95.2554 kg

DRUGS (7)
  1. BYETTA [Suspect]
     Indication: TYPE 2 DIABETES MELLITUS
     Dosage: 5 MCG QD SQ
     Route: 058
     Dates: start: 20080612, end: 20080614
  2. ACCOLATE [Concomitant]
  3. ACTOS [Concomitant]
  4. SYNTHROID [Concomitant]
  5. ZIAC [Concomitant]
  6. ACIPHEX [Concomitant]
  7. AMBIEN CR [Concomitant]

REACTIONS (3)
  - ASTHENIA [None]
  - DYSPNOEA [None]
  - RESPIRATORY DISTRESS [None]
